FAERS Safety Report 9199982 (Version 1)
Quarter: 2013Q1

REPORT INFORMATION
  Report Type: Other
  Country: CH (occurrence: CH)
  Receive Date: 20130329
  Receipt Date: 20130329
  Transmission Date: 20140127
  Serious: Yes (Other)
  Sender: FDA-Public Use
  Company Number: CH-BRISTOL-MYERS SQUIBB COMPANY-18696229

PATIENT
  Sex: Male

DRUGS (4)
  1. METFORMIN HCL [Suspect]
     Route: 064
  2. NOVORAPID [Suspect]
     Route: 064
  3. INSULIN DETEMIR [Suspect]
     Route: 064
  4. ATORVASTATIN [Suspect]
     Route: 064

REACTIONS (1)
  - Phalangeal agenesis [Unknown]
